FAERS Safety Report 5698596-5 (Version None)
Quarter: 2008Q2

REPORT INFORMATION
  Report Type: 
  Country: None (occurrence: None)
  Receive Date: 20080403
  Receipt Date: 20080324
  Transmission Date: 20081010
  Serious: Yes (Death)
  Sender: FDA-Public Use
  Company Number: SPV1-2008-00504

PATIENT
  Age: 17 Year
  Sex: Male
  Weight: 40 kg

DRUGS (9)
  1. ELAPRASE [Suspect]
     Indication: MUCOPOLYSACCHARIDOSIS II
     Dosage: 18 MG, 1X/WEEK, IV DRIP
     Route: 041
     Dates: start: 20071205, end: 20080222
  2. PHENOBARBITAL TAB [Concomitant]
  3. CLOBAZAM (CLOBAZAM) [Concomitant]
  4. MOSAPRIDE CITRATE (MOSAPRIDE CITRATE) [Concomitant]
  5. ETIZOLAM (ETIZOLAM) [Concomitant]
  6. DANTROLENE SODIUM [Concomitant]
  7. ACETAMINOPHEN [Concomitant]
  8. ASPARTATE CALCIUM (ASPARTATE CALCIUM) [Concomitant]
  9. LACTOMIN (LACTOMIN) [Concomitant]

REACTIONS (1)
  - RESPIRATORY FAILURE [None]
